FAERS Safety Report 5906842-5 (Version None)
Quarter: 2008Q3

REPORT INFORMATION
  Report Type: 
  Country: None (occurrence: None)
  Receive Date: 20080929
  Receipt Date: 20080918
  Transmission Date: 20090109
  Serious: Yes (Hospitalization)
  Sender: FDA-Public Use
  Company Number: 2008US002488

PATIENT
  Age: 54 Year
  Sex: Male

DRUGS (4)
  1. PROGRAF [Suspect]
     Indication: LUNG TRANSPLANT
     Dosage: BID, ORAL
     Route: 048
     Dates: start: 20080308
  2. AZATHIOPRINE [Concomitant]
  3. PREDNISONE [Concomitant]
  4. CELLCEPT [Concomitant]

REACTIONS (2)
  - LUNG INJURY [None]
  - LUNG TRANSPLANT REJECTION [None]
